FAERS Safety Report 7394747-5 (Version None)
Quarter: 2011Q2

REPORT INFORMATION
  Report Type: 
  Country: None (occurrence: None)
  Receive Date: 20110405
  Receipt Date: 20110401
  Transmission Date: 20111010
  Serious: Yes (Life-Threatening)
  Sender: FDA-Public Use
  Company Number: FR-SANOFI-AVENTIS-2011SA019731

PATIENT
  Age: 66 Year
  Sex: Male

DRUGS (10)
  1. MEDIATOR [Suspect]
     Route: 048
     Dates: start: 20000101, end: 20090101
  2. DIFFU K [Suspect]
     Route: 048
  3. DRUG USED IN DIABETES [Suspect]
     Route: 048
  4. PRAVASTATIN [Suspect]
     Route: 048
  5. FORADIL [Suspect]
     Route: 055
  6. DIAMOX [Suspect]
     Route: 048
  7. PLAVIX [Suspect]
     Route: 048
  8. IRBESARTAN [Suspect]
     Route: 048
  9. SPIRIVA [Suspect]
     Route: 055
  10. MIFLASONE [Suspect]
     Route: 055

REACTIONS (2)
  - PULMONARY ARTERIAL HYPERTENSION [None]
  - DYSPNOEA EXERTIONAL [None]
